FAERS Safety Report 5921435-1 (Version None)
Quarter: 2008Q4

REPORT INFORMATION
  Report Type: 
  Country: None (occurrence: None)
  Receive Date: 20081014
  Receipt Date: 20081001
  Transmission Date: 20090506
  Serious: Yes (Hospitalization)
  Sender: FDA-Public Use
  Company Number: 2008BI017573

PATIENT
  Age: 47 Year
  Sex: Male

DRUGS (3)
  1. AVONEX [Suspect]
     Indication: MULTIPLE SCLEROSIS
     Dosage: 30 UG;QW;IM
     Route: 030
     Dates: start: 20060501
  2. . [Concomitant]
  3. . [Concomitant]

REACTIONS (6)
  - DEEP VEIN THROMBOSIS [None]
  - DIZZINESS [None]
  - FATIGUE [None]
  - FEELING HOT [None]
  - HAEMATURIA [None]
  - LOSS OF CONSCIOUSNESS [None]
